FAERS Safety Report 11005597 (Version 1)
Quarter: 2015Q2

REPORT INFORMATION
  Report Type: Spontaneous
  Country: US (occurrence: US)
  Receive Date: 20150409
  Receipt Date: 20150409
  Transmission Date: 20150821
  Serious: No
  Sender: FDA-Public Use
  Company Number: US-ALLERGAN-1413704US

PATIENT
  Age: 69 Year
  Sex: Female

DRUGS (13)
  1. LEXAPRO [Concomitant]
     Active Substance: ESCITALOPRAM OXALATE
     Dosage: 10 MG, QD
     Route: 048
  2. FOLTX [Concomitant]
     Active Substance: CYANOCOBALAMIN CO-57\FOLIC ACID\PYRIDOXINE HYDROCHLORIDE
     Dosage: UNK UNK, QD
     Route: 048
  3. MICARDIS [Concomitant]
     Active Substance: TELMISARTAN
     Dosage: 40 MG, QD
     Route: 048
  4. LIBRAX [Concomitant]
     Active Substance: CHLORDIAZEPOXIDE HYDROCHLORIDE\CLIDINIUM BROMIDE
     Dosage: 5 MG, QD
     Route: 048
  5. METHOTREXATE SODIUM. [Concomitant]
     Active Substance: METHOTREXATE SODIUM
     Dosage: 25 MG, Q WEEK
  6. IMITREX [Concomitant]
     Active Substance: SUMATRIPTAN\SUMATRIPTAN SUCCINATE
     Indication: MIGRAINE
     Dosage: 50 MG, PRN
     Route: 048
  7. LYRICA [Concomitant]
     Active Substance: PREGABALIN
     Dosage: 75 MG, BID
     Route: 048
  8. PNV [Concomitant]
     Indication: SUPPLEMENTATION THERAPY
     Dosage: UNK
  9. DARVOCET [Concomitant]
     Active Substance: ACETAMINOPHEN\PROPOXYPHENE HYDROCHLORIDE
     Dosage: 500 MG, PRN
     Route: 048
  10. ENBREL [Concomitant]
     Active Substance: ETANERCEPT
     Dosage: 50 UNITS, Q WEEK
     Route: 058
  11. TOPAMAX [Concomitant]
     Active Substance: TOPIRAMATE
     Dosage: 40 MG, Q WEEK
     Route: 048
  12. LUMIGAN [Suspect]
     Active Substance: BIMATOPROST
     Indication: GLAUCOMA
     Dosage: 2 GTT, QHS
     Route: 047
  13. ZANAFLEX [Concomitant]
     Active Substance: TIZANIDINE HYDROCHLORIDE
     Dosage: UNK UNK, PRN
     Route: 048

REACTIONS (1)
  - Vision blurred [Recovered/Resolved]

NARRATIVE: CASE EVENT DATE: 20140515
